FAERS Safety Report 16449927 (Version 1)
Quarter: 2019Q2

REPORT INFORMATION
  Report Type: Spontaneous
  Country: US (occurrence: US)
  Receive Date: 20190619
  Receipt Date: 20190619
  Transmission Date: 20190711
  Serious: No
  Sender: FDA-Public Use
  Company Number: US-ROCHE-2121429

PATIENT
  Sex: Female

DRUGS (7)
  1. ORENCIA [Concomitant]
     Active Substance: ABATACEPT
  2. XELJANZ XR [Concomitant]
     Active Substance: TOFACITINIB CITRATE
     Route: 048
  3. ENBREL [Concomitant]
     Active Substance: ETANERCEPT
  4. REMICADE [Concomitant]
     Active Substance: INFLIXIMAB
  5. HUMIRA [Concomitant]
     Active Substance: ADALIMUMAB
  6. ACTEMRA [Suspect]
     Active Substance: TOCILIZUMAB
     Indication: RHEUMATOID ARTHRITIS
     Route: 065
  7. METHOTREXATE. [Concomitant]
     Active Substance: METHOTREXATE

REACTIONS (1)
  - Drug ineffective [Unknown]
